FAERS Safety Report 19930949 (Version 1)
Quarter: 2021Q4

REPORT INFORMATION
  Report Type: Report from Study
  Country: GB (occurrence: GB)
  Receive Date: 20211007
  Receipt Date: 20211007
  Transmission Date: 20220303
  Serious: Yes (Death, Other)
  Sender: FDA-Public Use
  Company Number: 2021A761363

PATIENT
  Sex: Female

DRUGS (2)
  1. OLAPARIB [Suspect]
     Active Substance: OLAPARIB
     Indication: Ovarian cancer
     Dosage: UNK
     Route: 048
  2. OLAPARIB [Suspect]
     Active Substance: OLAPARIB
     Indication: Neoplasm malignant
     Dosage: UNK
     Route: 048

REACTIONS (1)
  - Death [Fatal]
